FAERS Safety Report 12636481 (Version 1)
Quarter: 2016Q3

REPORT INFORMATION
  Report Type: Other
  Country: KW (occurrence: KW)
  Receive Date: 20160809
  Receipt Date: 20160809
  Transmission Date: 20161109
  Serious: Yes (Hospitalization)
  Sender: FDA-Public Use
  Company Number: KW-LUPIN PHARMACEUTICALS INC.-2016-01981

PATIENT
  Age: 20 Year
  Sex: Male

DRUGS (1)
  1. QUININE [Suspect]
     Active Substance: QUININE
     Indication: PLASMODIUM FALCIPARUM INFECTION
     Route: 042

REACTIONS (1)
  - Haemoglobinuria [Recovered/Resolved]
